FAERS Safety Report 10039791 (Version 3)
Quarter: 2014Q4

REPORT INFORMATION
  Report Type: Report from Study
  Country: DE (occurrence: DE)
  Receive Date: 20140326
  Receipt Date: 20141215
  Transmission Date: 20150528
  Serious: Yes (Hospitalization)
  Sender: FDA-Public Use
  Company Number: DE-JNJFOC-20140315043

PATIENT
  Age: 70 Year
  Sex: Female
  Weight: 49 kg

DRUGS (9)
  1. LANITOP [Concomitant]
     Active Substance: METILDIGOXIN
     Route: 065
     Dates: start: 2010
  2. VALSARTAN. [Concomitant]
     Active Substance: VALSARTAN
     Route: 065
     Dates: start: 200507
  3. METOPROLOL SUCCINATE. [Concomitant]
     Active Substance: METOPROLOL SUCCINATE
     Route: 065
     Dates: start: 200502
  4. XARELTO [Suspect]
     Active Substance: RIVAROXABAN
     Indication: CEREBROVASCULAR ACCIDENT PROPHYLAXIS
     Route: 048
     Dates: start: 20130115
  5. OMEPRAZOLE. [Concomitant]
     Active Substance: OMEPRAZOLE
     Route: 065
     Dates: start: 201006
  6. SPIRONOLACTON [Concomitant]
     Active Substance: SPIRONOLACTONE
     Route: 065
     Dates: start: 200805
  7. TORASEMID [Concomitant]
     Active Substance: TORSEMIDE
     Route: 065
     Dates: start: 200905
  8. XARELTO [Suspect]
     Active Substance: RIVAROXABAN
     Indication: ATRIAL FIBRILLATION
     Route: 048
     Dates: start: 20130115
  9. SIMVASTATIN. [Concomitant]
     Active Substance: SIMVASTATIN
     Route: 065
     Dates: start: 2010

REACTIONS (2)
  - Diverticulum [Recovered/Resolved]
  - Gastrointestinal haemorrhage [Recovered/Resolved]

NARRATIVE: CASE EVENT DATE: 20131108
